FAERS Safety Report 23226833 (Version 1)
Quarter: 2023Q4

REPORT INFORMATION
  Report Type: Spontaneous
  Country: US (occurrence: US)
  Receive Date: 20231124
  Receipt Date: 20231124
  Transmission Date: 20240109
  Serious: No
  Sender: FDA-Public Use
  Company Number: US-TAKEDA-2023TUS112375

PATIENT
  Age: 18 Year
  Sex: Male
  Weight: 86 kg

DRUGS (1)
  1. VYVANSE [Suspect]
     Active Substance: LISDEXAMFETAMINE DIMESYLATE
     Indication: Attention deficit hyperactivity disorder
     Dosage: 30 MILLIGRAM
     Route: 065

REACTIONS (8)
  - Mood altered [Unknown]
  - Loss of personal independence in daily activities [Unknown]
  - Asthenia [Unknown]
  - Sleep disorder [Unknown]
  - Affective disorder [Unknown]
  - Product use issue [Unknown]
  - Product availability issue [Unknown]
  - Product dose omission issue [Unknown]
